FAERS Safety Report 8025723-7 (Version None)
Quarter: 2012Q1

REPORT INFORMATION
  Report Type: 
  Country: None (occurrence: None)
  Receive Date: 20120105
  Receipt Date: 20110411
  Transmission Date: 20120608
  Serious: No
  Sender: FDA-Public Use
  Company Number: US-ABBOTT-10P-163-0653948-00

PATIENT
  Sex: Female
  Weight: 58.112 kg

DRUGS (4)
  1. VIVALLE DOT [Concomitant]
     Indication: OESTROGEN REPLACEMENT THERAPY
  2. SYNTHROID [Suspect]
     Indication: THYROIDECTOMY
     Route: 048
     Dates: start: 19770101
  3. PROVERA [Concomitant]
     Indication: PRODUCT USED FOR UNKNOWN INDICATION
  4. MULTI-VITAMIN [Concomitant]
     Indication: VITAMIN SUPPLEMENTATION

REACTIONS (4)
  - FATIGUE [None]
  - DYSPHONIA [None]
  - HYPOTHYROIDISM [None]
  - TABLET PHYSICAL ISSUE [None]
